FAERS Safety Report 6407739-7 (Version None)
Quarter: 2009Q4

REPORT INFORMATION
  Report Type: 
  Country: None (occurrence: None)
  Receive Date: 20091020
  Receipt Date: 20091015
  Transmission Date: 20100525
  Serious: Yes (Other)
  Sender: FDA-Public Use
  Company Number: US-ABBOTT-09P-163-0601116-00

PATIENT
  Sex: Male
  Weight: 122.58 kg

DRUGS (13)
  1. NIASPAN [Suspect]
     Indication: BLOOD TRIGLYCERIDES INCREASED
     Dosage: 500MG EVERY NIGHT
     Dates: start: 20060101, end: 20090301
  2. NIASPAN [Suspect]
     Indication: HIGH DENSITY LIPOPROTEIN DECREASED
     Dosage: 1000MG EVERY NIGHT
     Dates: start: 20090301
  3. NIASPAN [Suspect]
     Indication: LOW DENSITY LIPOPROTEIN INCREASED
  4. UNKNOWN PAIN PILLS [Suspect]
     Indication: DRUG USE FOR UNKNOWN INDICATION
  5. ASPIRIN [Concomitant]
     Indication: DRUG USE FOR UNKNOWN INDICATION
  6. ZOCOR [Concomitant]
     Indication: DRUG USE FOR UNKNOWN INDICATION
  7. XANAX [Concomitant]
     Indication: DRUG USE FOR UNKNOWN INDICATION
  8. PERCOCET [Concomitant]
     Indication: DRUG USE FOR UNKNOWN INDICATION
  9. OXYCODONE [Concomitant]
     Indication: DRUG USE FOR UNKNOWN INDICATION
  10. METFORMIN [Concomitant]
     Indication: DRUG USE FOR UNKNOWN INDICATION
  11. DIOVAN HCT [Concomitant]
     Indication: DRUG USE FOR UNKNOWN INDICATION
     Dosage: 160/12.5MG
  12. SOMA [Concomitant]
     Indication: DRUG USE FOR UNKNOWN INDICATION
  13. LOVAZA [Concomitant]
     Indication: DRUG USE FOR UNKNOWN INDICATION

REACTIONS (12)
  - ACCIDENT [None]
  - DEAFNESS [None]
  - DIARRHOEA [None]
  - ERYTHEMA [None]
  - FLUSHING [None]
  - FOREIGN BODY [None]
  - HEADACHE [None]
  - KNEE ARTHROPLASTY [None]
  - MALAISE [None]
  - SKIN BURNING SENSATION [None]
  - SPINAL FUSION SURGERY [None]
  - TENDON OPERATION [None]
